FAERS Safety Report 9562204 (Version 2)
Quarter: 2013Q4

REPORT INFORMATION
  Report Type: Report from Study
  Country: JP (occurrence: JP)
  Receive Date: 20130927
  Receipt Date: 20131113
  Transmission Date: 20140711
  Serious: Yes (Death, Other)
  Sender: FDA-Public Use
  Company Number: PHHY2013JP107896

PATIENT
  Age: 84 Year
  Sex: Female
  Weight: 40 kg

DRUGS (2)
  1. EXELON [Suspect]
     Indication: DEMENTIA ALZHEIMER^S TYPE
     Dosage: 4.5 MG, DAILY
     Route: 062
     Dates: start: 20130111, end: 20130207
  2. EXELON [Suspect]
     Dosage: 9 MG, DAILY
     Route: 062
     Dates: start: 20130208

REACTIONS (2)
  - Colon cancer [Fatal]
  - Haematochezia [Fatal]
